FAERS Safety Report 14006383 (Version 1)
Quarter: 2017Q3

REPORT INFORMATION
  Report Type: Report from Study
  Country: None (occurrence: US)
  Receive Date: 20170925
  Receipt Date: 20170925
  Transmission Date: 20171128
  Serious: Yes (Hospitalization)
  Sender: FDA-Public Use
  Company Number: US-ABBVIE-17K-163-2031432-00

PATIENT
  Age: 24 Year
  Sex: Male
  Weight: 72.64 kg

DRUGS (5)
  1. PROBIOTIC [Concomitant]
     Active Substance: PROBIOTICS NOS
     Indication: PRODUCT USED FOR UNKNOWN INDICATION
  2. HUMIRA [Suspect]
     Active Substance: ADALIMUMAB
     Indication: CROHN^S DISEASE
     Route: 058
     Dates: start: 201703, end: 20170614
  3. LEVOFLOXACIN. [Concomitant]
     Active Substance: LEVOFLOXACIN
     Indication: EPIDIDYMITIS
  4. PRILOSEC [Concomitant]
     Active Substance: OMEPRAZOLE MAGNESIUM
     Indication: CROHN^S DISEASE
  5. DOXYCYCLINE. [Concomitant]
     Active Substance: DOXYCYCLINE
     Indication: EPIDIDYMITIS

REACTIONS (10)
  - Nausea [Recovering/Resolving]
  - Fistula [Recovering/Resolving]
  - Gastrointestinal infection [Recovering/Resolving]
  - Crohn^s disease [Recovering/Resolving]
  - Pyrexia [Recovering/Resolving]
  - Malnutrition [Not Recovered/Not Resolved]
  - Electrolyte imbalance [Recovering/Resolving]
  - Neuralgia [Recovering/Resolving]
  - Epididymitis [Recovering/Resolving]
  - Procedural pain [Recovering/Resolving]

NARRATIVE: CASE EVENT DATE: 20170626
